FAERS Safety Report 17071411 (Version 1)
Quarter: 2019Q4

REPORT INFORMATION
  Report Type: Spontaneous
  Country: US (occurrence: US)
  Receive Date: 20191125
  Receipt Date: 20191125
  Transmission Date: 20200122
  Serious: No
  Sender: FDA-Public Use
  Company Number: US-009507513-1911USA008274

PATIENT
  Sex: Female

DRUGS (2)
  1. PROVENTIL [Suspect]
     Active Substance: ALBUTEROL
     Dosage: 6 INHALATIONS DAILY
     Route: 055
     Dates: start: 201903
  2. PROVENTIL [Suspect]
     Active Substance: ALBUTEROL
     Dosage: 6 INHALATIONS DAILY
     Route: 055
     Dates: start: 201903

REACTIONS (4)
  - Product quality issue [Unknown]
  - Poor quality device used [Unknown]
  - No adverse event [Unknown]
  - Product packaging issue [Unknown]

NARRATIVE: CASE EVENT DATE: 201907
